FAERS Safety Report 9590115 (Version 1)
Quarter: 2013Q4

REPORT INFORMATION
  Report Type: Spontaneous
  Country: US (occurrence: US)
  Receive Date: 20131003
  Receipt Date: 20131003
  Transmission Date: 20140711
  Serious: No
  Sender: FDA-Public Use
  Company Number: US-AMGEN-USASP2012074629

PATIENT
  Sex: Female
  Weight: 108.39 kg

DRUGS (6)
  1. ENBREL [Suspect]
     Indication: RHEUMATOID ARTHRITIS
     Dosage: 50 MG, QWK
     Route: 058
  2. METHOTREXATE [Concomitant]
     Dosage: 2.5 MG, UNK
  3. HUMIRA [Concomitant]
     Dosage: 40 MG/0.8
  4. VESICARE [Concomitant]
     Dosage: 10 MG, UNK
  5. ZIPSOR [Concomitant]
     Dosage: 25 MG, UNK
  6. CONZIP [Concomitant]
     Dosage: 300 MG, UNK

REACTIONS (1)
  - Drug ineffective [Unknown]
